FAERS Safety Report 21013025 (Version 1)
Quarter: 2022Q2

REPORT INFORMATION
  Report Type: Spontaneous
  Country: US (occurrence: US)
  Receive Date: 20220627
  Receipt Date: 20220627
  Transmission Date: 20220721
  Serious: No
  Sender: FDA-Public Use
  Company Number: US-SA-SAC20220617000746

PATIENT
  Age: 17 Year
  Sex: Male

DRUGS (1)
  1. DUPIXENT [Suspect]
     Active Substance: DUPILUMAB
     Indication: Product used for unknown indication
     Dosage: 300 MG, UNK
     Route: 058
     Dates: start: 202203

REACTIONS (2)
  - Anger [Not Recovered/Not Resolved]
  - Affect lability [Not Recovered/Not Resolved]

NARRATIVE: CASE EVENT DATE: 20220601
